FAERS Safety Report 7585709-3 (Version None)
Quarter: 2011Q2

REPORT INFORMATION
  Report Type: 
  Country: None (occurrence: None)
  Receive Date: 20110629
  Receipt Date: 20110629
  Transmission Date: 20111010
  Serious: No
  Sender: FDA-Public Use
  Company Number: None

PATIENT
  Sex: Male
  Weight: 88.4514 kg

DRUGS (2)
  1. ACTOS [Suspect]
     Indication: DIABETES MELLITUS
     Dosage: 45 MG
     Dates: end: 20110101
  2. SANUVIA 100 MG [Suspect]
     Indication: DIABETES MELLITUS
     Dosage: 100 MG
     Dates: end: 20110101

REACTIONS (2)
  - TOOTH LOSS [None]
  - WEIGHT INCREASED [None]
